FAERS Safety Report 9382044 (Version 3)
Quarter: 2013Q3

REPORT INFORMATION
  Report Type: Spontaneous
  Country: US (occurrence: US)
  Receive Date: 20130703
  Receipt Date: 20130820
  Transmission Date: 20140515
  Serious: No
  Sender: FDA-Public Use
  Company Number: US-ROXANE LABORATORIES, INC.-2013-RO-01066RO

PATIENT
  Sex: Female
  Weight: 103 kg

DRUGS (5)
  1. PREDNISONE [Suspect]
     Indication: PEMPHIGOID
     Route: 048
  2. PROAIR HFA [Concomitant]
     Indication: ASTHMA
     Dosage: 90 MCG
  3. ZANTAC [Concomitant]
     Indication: DYSPEPSIA
  4. SINGULAIR [Concomitant]
     Indication: ASTHMA
  5. AMLODIPINE [Concomitant]
     Indication: HYPERTENSION

REACTIONS (4)
  - Drug ineffective for unapproved indication [Not Recovered/Not Resolved]
  - Rash [Not Recovered/Not Resolved]
  - Pruritus [Not Recovered/Not Resolved]
  - Product quality issue [Unknown]
